FAERS Safety Report 6437019-5 (Version None)
Quarter: 2009Q4

REPORT INFORMATION
  Report Type: 
  Country: None (occurrence: None)
  Receive Date: 20091112
  Receipt Date: 20091103
  Transmission Date: 20100525
  Serious: Yes (Death, Hospitalization)
  Sender: FDA-Public Use
  Company Number: ES-ELI_LILLY_AND_COMPANY-ES200911000751

PATIENT
  Sex: Male
  Weight: 78 kg

DRUGS (15)
  1. PEMETREXED [Suspect]
     Indication: NON-SMALL CELL LUNG CANCER
     Dosage: 500 MG/M2, ON D1 EVERY 21 DAYS
     Route: 042
     Dates: start: 20091008
  2. CISPLATIN [Suspect]
     Indication: NON-SMALL CELL LUNG CANCER
     Dosage: 75 MG/M2, ON D1 EVERY 21 DAYS
     Route: 042
     Dates: start: 20091008
  3. FOLIC ACID [Concomitant]
     Indication: PROPHYLAXIS
     Dates: start: 20091001
  4. VIT B12 [Concomitant]
     Indication: PROPHYLAXIS
     Dates: start: 20091001
  5. DEXAMETHASONE [Concomitant]
     Indication: PROPHYLAXIS
     Dates: start: 20091008
  6. SINTROM [Concomitant]
     Indication: PROPHYLAXIS
     Dates: start: 20090906
  7. RAMPRIL [Concomitant]
     Indication: HYPERTENSION
     Dates: start: 20080101
  8. AMIODARONA [Concomitant]
     Indication: HYPERTENSION
     Dates: start: 20080101
  9. SIMVASTATIN [Concomitant]
     Indication: PROPHYLAXIS
     Dates: start: 20090906
  10. TORASEMIDE [Concomitant]
     Indication: PROPHYLAXIS
     Dates: start: 20090906
  11. LORAZEPAM [Concomitant]
     Indication: PROPHYLAXIS
     Dates: start: 20090921
  12. FENTANILO [Concomitant]
     Indication: PROPHYLAXIS
     Dates: start: 20090921
  13. OMEPRAZOLE [Concomitant]
     Indication: PROPHYLAXIS
     Dates: start: 20090921
  14. DIGOXIN [Concomitant]
     Indication: PROPHYLAXIS
     Dates: start: 20090921
  15. DEFLAZACORT [Concomitant]
     Indication: PROPHYLAXIS
     Dates: start: 20090921

REACTIONS (1)
  - NEUTROPENIC COLITIS [None]
